FAERS Safety Report 15582352 (Version 1)
Quarter: 2018Q4

REPORT INFORMATION
  Report Type: Report from Study
  Country: CN (occurrence: CN)
  Receive Date: 20181102
  Receipt Date: 20181102
  Transmission Date: 20190205
  Serious: Yes (Other)
  Sender: FDA-Public Use
  Company Number: CN-ROCHE-2200708

PATIENT

DRUGS (7)
  1. LEUCOVORIN. [Suspect]
     Active Substance: LEUCOVORIN
     Indication: COLORECTAL CANCER
     Route: 041
  2. IRINOTECAN [Suspect]
     Active Substance: IRINOTECAN
     Indication: COLORECTAL CANCER
     Route: 041
  3. 5-FLUOROURACIL [Suspect]
     Active Substance: FLUOROURACIL
     Indication: COLORECTAL CANCER
     Dosage: FOR 5 MINUTES
     Route: 042
  4. CAPECITABINE. [Suspect]
     Active Substance: CAPECITABINE
     Indication: COLORECTAL CANCER
     Route: 048
  5. BEVACIZUMAB. [Suspect]
     Active Substance: BEVACIZUMAB
     Indication: COLORECTAL CANCER
     Dosage: WHEN USED IN COMBINATION WITH MFOLFOX, FOLFIRI AND 5-FLUOROURACIL MONOTHERAPY REGIMEN, BEVACIZUMAB W
     Route: 041
  6. OXALIPLATIN. [Suspect]
     Active Substance: OXALIPLATIN
     Indication: COLORECTAL CANCER
     Route: 041
  7. 5-FLUOROURACIL [Suspect]
     Active Substance: FLUOROURACIL
     Dosage: FOR 46 HOURS
     Route: 041

REACTIONS (20)
  - Intestinal obstruction [Unknown]
  - Vomiting [Unknown]
  - Bone marrow failure [Unknown]
  - Hypertension [Unknown]
  - Hepatic function abnormal [Unknown]
  - Stomatitis [Unknown]
  - Nausea [Unknown]
  - Diarrhoea [Unknown]
  - Haematochezia [Recovered/Resolved]
  - Hypersensitivity [Unknown]
  - Vaginal haemorrhage [Recovered/Resolved]
  - Cholinergic syndrome [Unknown]
  - Fatigue [Unknown]
  - Impaired healing [Recovered/Resolved]
  - Haematemesis [Recovered/Resolved]
  - Neuropathy peripheral [Unknown]
  - Palmar-plantar erythrodysaesthesia syndrome [Unknown]
  - Epistaxis [Recovered/Resolved]
  - Proteinuria [Recovered/Resolved]
  - Thrombosis [Unknown]
